FAERS Safety Report 15640144 (Version 12)
Quarter: 2022Q4

REPORT INFORMATION
  Report Type: Spontaneous
  Country: GB (occurrence: GB)
  Receive Date: 20181120
  Receipt Date: 20221018
  Transmission Date: 20230113
  Serious: Yes (Death, Other)
  Sender: FDA-Public Use
  Company Number: GB-SA-2018SA314787

PATIENT
  Age: 37 Year
  Sex: Male

DRUGS (17)
  1. DEXAMETHASONE [Suspect]
     Active Substance: DEXAMETHASONE
     Indication: Tuberculosis of central nervous system
     Dosage: 16 MG, BID
  2. DEXAMETHASONE [Suspect]
     Active Substance: DEXAMETHASONE
     Indication: Immune reconstitution inflammatory syndrome
     Dosage: 8 MG, BID DOSE REDUCED
     Route: 042
  3. LEVOFLOXACIN [Suspect]
     Active Substance: LEVOFLOXACIN
     Indication: Tuberculosis
     Dosage: UNK UNK, Q12H
  4. RIFAMPIN [Suspect]
     Active Substance: RIFAMPIN
     Indication: Disseminated tuberculosis
     Dosage: UNK, Q12H
     Route: 042
  5. RIFAMPIN [Suspect]
     Active Substance: RIFAMPIN
     Indication: Tuberculosis of central nervous system
     Dosage: UNK, QD
  6. ETHAMBUTOL [Suspect]
     Active Substance: ETHAMBUTOL HYDROCHLORIDE
     Indication: Disseminated tuberculosis
     Dosage: UNK, Q12H
  7. ETHAMBUTOL [Suspect]
     Active Substance: ETHAMBUTOL HYDROCHLORIDE
     Indication: Tuberculosis of central nervous system
     Dosage: UNK, QD
  8. ISONIAZID [Suspect]
     Active Substance: ISONIAZID
     Indication: Disseminated tuberculosis
     Dosage: UNK, Q12H
  9. ISONIAZID [Suspect]
     Active Substance: ISONIAZID
     Indication: Tuberculosis of central nervous system
     Dosage: UNK, QD
  10. PYRAZINAMIDE [Suspect]
     Active Substance: PYRAZINAMIDE
     Indication: Disseminated tuberculosis
     Dosage: UNK UNK, QD
     Route: 042
  11. PYRAZINAMIDE [Suspect]
     Active Substance: PYRAZINAMIDE
     Indication: Tuberculosis of central nervous system
     Dosage: UNK, QD
  12. AMIKACIN SULFATE [Suspect]
     Active Substance: AMIKACIN SULFATE
     Indication: Tuberculosis
     Dosage: UNK, Q12H
  13. AMIKACIN SULFATE [Suspect]
     Active Substance: AMIKACIN SULFATE
     Indication: Tuberculosis of central nervous system
     Dosage: UNK, QD
  14. MOXIFLOXACIN HYDROCHLORIDE [Suspect]
     Active Substance: MOXIFLOXACIN HYDROCHLORIDE
     Indication: Tuberculosis of central nervous system
  15. MOXIFLOXACIN HYDROCHLORIDE [Suspect]
     Active Substance: MOXIFLOXACIN HYDROCHLORIDE
     Indication: Disseminated tuberculosis
  16. THALIDOMIDE [Suspect]
     Active Substance: THALIDOMIDE
     Indication: Tuberculosis of central nervous system
     Dosage: 50 MG, BID
  17. THALIDOMIDE [Suspect]
     Active Substance: THALIDOMIDE
     Dosage: 200 MG, BID

REACTIONS (12)
  - Vasculitis [Fatal]
  - Condition aggravated [Fatal]
  - Cardiac arrest [Fatal]
  - Immune reconstitution inflammatory syndrome [Fatal]
  - Coma scale abnormal [Fatal]
  - Tuberculosis of central nervous system [Fatal]
  - Hydrocephalus [Fatal]
  - Brain oedema [Fatal]
  - Somnolence [Fatal]
  - Thalamic infarction [Fatal]
  - Drug resistance [Fatal]
  - Drug ineffective [Fatal]
